FAERS Safety Report 4286270-1 (Version None)
Quarter: 2004Q1

REPORT INFORMATION
  Report Type: 
  Country: None (occurrence: None)
  Receive Date: 20040121
  Receipt Date: 20030508
  Transmission Date: 20041129
  Serious: Yes (Other)
  Sender: FDA-Public Use
  Company Number: 337696

PATIENT
  Age: 57 Year
  Sex: Female
  Weight: 77.6 kg

DRUGS (1)
  1. VESANOID [Suspect]
     Indication: ACUTE PROMYELOCYTIC LEUKAEMIA
     Dosage: 40 MG 2 PER DAY ORAL
     Route: 048
     Dates: start: 20030501

REACTIONS (2)
  - ARTHRALGIA [None]
  - PAIN IN EXTREMITY [None]
